FAERS Safety Report 5690825-7 (Version None)
Quarter: 2008Q2

REPORT INFORMATION
  Report Type: 
  Country: None (occurrence: None)
  Receive Date: 20080401
  Receipt Date: 20080317
  Transmission Date: 20081010
  Serious: Yes (Hospitalization)
  Sender: FDA-Public Use
  Company Number: B0513914A

PATIENT
  Age: 50 Year
  Sex: Male

DRUGS (6)
  1. LAMIVUDINE [Suspect]
     Indication: HIV INFECTION
     Route: 065
  2. INDINIVIR SULFATE [Suspect]
     Indication: HIV INFECTION
     Route: 065
  3. STAVUDINE [Suspect]
     Indication: HIV INFECTION
     Route: 065
  4. EFAVIRENZ [Suspect]
     Indication: HIV INFECTION
     Route: 065
  5. TENOFOVIR [Suspect]
     Indication: HIV INFECTION
     Route: 065
  6. PRAVASTATIN [Concomitant]
     Route: 065

REACTIONS (15)
  - AGITATION [None]
  - BLOOD CHOLESTEROL INCREASED [None]
  - BLOOD TRIGLYCERIDES INCREASED [None]
  - BRAIN OEDEMA [None]
  - CARDIAC HYPERTROPHY [None]
  - COMA [None]
  - CONFUSIONAL STATE [None]
  - FACIAL PALSY [None]
  - HYPERTENSION [None]
  - MUSCULAR WEAKNESS [None]
  - PAPILLOEDEMA [None]
  - PYREXIA [None]
  - REVERSIBLE POSTERIOR LEUKOENCEPHALOPATHY SYNDROME [None]
  - TACHYCARDIA [None]
  - WAIST CIRCUMFERENCE INCREASED [None]
